FAERS Safety Report 7521625-0 (Version None)
Quarter: 2011Q2

REPORT INFORMATION
  Report Type: 
  Country: None (occurrence: None)
  Receive Date: 20110524
  Receipt Date: 20110512
  Transmission Date: 20111010
  Serious: Yes (Other)
  Sender: FDA-Public Use
  Company Number: ACO_23863_2011

PATIENT
  Age: 47 Year
  Sex: Male

DRUGS (5)
  1. AMPYRA [Suspect]
  2. MULTIVITAMIN /00097801/(ASCORBIC ACID, CALCIUM PANTOTHENATE, ERGOCALCI [Concomitant]
  3. AMPYRA [Suspect]
     Indication: PRODUCT USED FOR UNKNOWN INDICATION
     Dosage: 10 MG, BID
     Dates: start: 20101028, end: 20110411
  4. AMPYRA [Suspect]
  5. MELATONIN (MELATONIN) [Concomitant]

REACTIONS (6)
  - DRUG INEFFECTIVE [None]
  - CONTUSION [None]
  - CONVULSION [None]
  - LOSS OF CONSCIOUSNESS [None]
  - FALL [None]
  - HAEMATOMA [None]
